FAERS Safety Report 16780233 (Version 5)
Quarter: 2020Q3

REPORT INFORMATION
  Report Type: Spontaneous
  Country: US (occurrence: US)
  Receive Date: 20190906
  Receipt Date: 20200819
  Transmission Date: 20201102
  Serious: No
  Sender: FDA-Public Use
  Company Number: US-PFIZER INC-2018243361

PATIENT
  Age: 8 Year
  Sex: Male

DRUGS (4)
  1. GENOTROPIN [Suspect]
     Active Substance: SOMATROPIN
     Dosage: 2 MG, DAILY
  2. GENOTROPIN [Suspect]
     Active Substance: SOMATROPIN
     Dosage: 2.6 MG, DAILY
     Dates: start: 20120825
  3. GENOTROPIN [Suspect]
     Active Substance: SOMATROPIN
     Dosage: 2.5 MG, DAILY
     Dates: start: 20120825
  4. GENOTROPIN [Suspect]
     Active Substance: SOMATROPIN
     Dosage: 1.7 MG, DAILY

REACTIONS (4)
  - Arthralgia [Unknown]
  - Drug ineffective [Unknown]
  - Product prescribing error [Unknown]
  - Constipation [Unknown]

NARRATIVE: CASE EVENT DATE: 20120825
